FAERS Safety Report 23107677 (Version 2)
Quarter: 2023Q4

REPORT INFORMATION
  Report Type: Spontaneous
  Country: DE (occurrence: DE)
  Receive Date: 20231026
  Receipt Date: 20231103
  Transmission Date: 20240110
  Serious: Yes (Life-Threatening, Hospitalization, Other)
  Sender: FDA-Public Use
  Company Number: DE-002147023-NVSC2023DE228800

PATIENT
  Sex: Male

DRUGS (2)
  1. PLUVICTO [Suspect]
     Active Substance: LUTETIUM LU-177 VIPIVOTIDE TETRAXETAN
     Indication: Product used for unknown indication
     Dosage: UNK (1000 MBQ/ML )
     Route: 065
     Dates: start: 20230615, end: 20230615
  2. PLUVICTO [Suspect]
     Active Substance: LUTETIUM LU-177 VIPIVOTIDE TETRAXETAN
     Dosage: UNK (1000 MBQ/ML )
     Route: 065
     Dates: start: 20230802, end: 20230802

REACTIONS (9)
  - Multiple organ dysfunction syndrome [Unknown]
  - Spinal cord haematoma [Unknown]
  - Monoplegia [Not Recovered/Not Resolved]
  - Haemorrhage [Unknown]
  - Delirium [Unknown]
  - Ageusia [Recovered/Resolved]
  - Aptyalism [Not Recovered/Not Resolved]
  - Pain [Not Recovered/Not Resolved]
  - Dysgeusia [Not Recovered/Not Resolved]

NARRATIVE: CASE EVENT DATE: 20230101
